FAERS Safety Report 24038763 (Version 2)
Quarter: 2025Q1

REPORT INFORMATION
  Report Type: Report from Study
  Country: US (occurrence: US)
  Receive Date: 20240702
  Receipt Date: 20250106
  Transmission Date: 20250409
  Serious: No
  Sender: TAKEDA
  Company Number: US-TAKEDA-2023TUS115401

PATIENT
  Sex: Male

DRUGS (10)
  1. PONATINIB [Suspect]
     Active Substance: PONATINIB
     Indication: Chronic myeloid leukaemia
     Dosage: 45 MILLIGRAM, QD
  2. PONATINIB [Suspect]
     Active Substance: PONATINIB
     Dosage: 30 MILLIGRAM, QD
  3. PONATINIB [Suspect]
     Active Substance: PONATINIB
     Dosage: 15 MILLIGRAM, QD
  4. PONATINIB [Suspect]
     Active Substance: PONATINIB
  5. PONATINIB [Suspect]
     Active Substance: PONATINIB
  6. PONATINIB [Suspect]
     Active Substance: PONATINIB
  7. PONATINIB [Suspect]
     Active Substance: PONATINIB
  8. ALLOPURINOL [Concomitant]
     Active Substance: ALLOPURINOL
  9. LEVAQUIN [Concomitant]
     Active Substance: LEVOFLOXACIN
  10. ACYCLOVIR [Concomitant]
     Active Substance: ACYCLOVIR

REACTIONS (3)
  - Off label use [Unknown]
  - Haemoglobin decreased [Unknown]
  - Platelet count decreased [Unknown]
